FAERS Safety Report 7930307-2 (Version None)
Quarter: 2011Q4

REPORT INFORMATION
  Report Type: 
  Country: None (occurrence: None)
  Receive Date: 20111117
  Receipt Date: 20111103
  Transmission Date: 20120403
  Serious: Yes (Death)
  Sender: FDA-Public Use
  Company Number: GPV/SAF/11/0021792

PATIENT
  Age: 70 Year
  Sex: Male

DRUGS (5)
  1. PREXUM [Concomitant]
  2. UNSPECIFIED ANTIBIOTICS [Concomitant]
  3. ATENOLOL [Concomitant]
  4. OMEZ 20 (OMEPRAZOLE) [Suspect]
     Indication: GASTRIC ULCER
     Dosage: 20 MG, 1 IN 12 HR, ORAL
     Route: 048
  5. ADALAT [Concomitant]

REACTIONS (3)
  - FLATULENCE [None]
  - MUSCULOSKELETAL DISCOMFORT [None]
  - ERUCTATION [None]
